FAERS Safety Report 6067841-9 (Version None)
Quarter: 2009Q1

REPORT INFORMATION
  Report Type: 
  Country: None (occurrence: None)
  Receive Date: 20090202
  Receipt Date: 20090122
  Transmission Date: 20090719
  Serious: Yes (Other)
  Sender: FDA-Public Use
  Company Number: CIP08002327

PATIENT
  Age: 69 Year
  Sex: Female
  Weight: 97.3 kg

DRUGS (18)
  1. ACTONEL [Suspect]
     Dosage: 35 MG ONCE WEEKLY, ORAL
     Route: 048
     Dates: start: 20050101
  2. QUINAPRIL HCL [Concomitant]
  3. PROVERA /00115201/ (MEDROXYPROGESTERONE) [Concomitant]
  4. SINGULAIR /01362601/ (MONTELUKAST) [Concomitant]
  5. POTASSIUM (POTASSIUM) [Concomitant]
  6. PROTONIX /01263201/ (PANTOPRAZOLE) [Concomitant]
  7. ELMIRON (PENTOSAN POLYSULFATE SODIUM) , 100 MG [Concomitant]
  8. ERGOCALCIFEROL [Concomitant]
  9. LASIX [Concomitant]
  10. GLUCOSAMINE + CHONDROITIN (CHONDROITIN SULFATE, GLUCOSAMINE) [Concomitant]
  11. MULTIVITAMIN /00831701/ (VITAMIN NOS) [Concomitant]
  12. NASACORT [Concomitant]
  13. CALCIUM (CALCIUM) [Concomitant]
  14. MAGNESIUM (MAGNESIUM) [Concomitant]
  15. MUCINEX [Concomitant]
  16. ORTHO-EST [Concomitant]
  17. PHENAVENT LA (GUAIFENESIN, PHENYLEPHRINE HYDROCHLORIDE) [Concomitant]
  18. ZYRTEC [Concomitant]

REACTIONS (12)
  - ATRIAL FIBRILLATION [None]
  - ATRIAL SEPTAL DEFECT [None]
  - DILATATION VENTRICULAR [None]
  - DIZZINESS [None]
  - DYSPNOEA [None]
  - ELECTROCARDIOGRAM ST-T CHANGE [None]
  - FATIGUE [None]
  - INTERNATIONAL NORMALISED RATIO INCREASED [None]
  - INTRACARDIAC THROMBUS [None]
  - MITRAL VALVE INCOMPETENCE [None]
  - RIGHT ATRIAL DILATATION [None]
  - TRICUSPID VALVE INCOMPETENCE [None]
